FAERS Safety Report 8609329 (Version 4)
Quarter: 2012Q4

REPORT INFORMATION
  Report Type: 
  Country: JP (occurrence: JP)
  Receive Date: 20120611
  Receipt Date: 20121102
  Transmission Date: 20130627
  Serious: Yes (Hospitalization, Other)
  Sender: FDA-Public Use
  Company Number: JP-AMGEN-JPNSP2012034792

PATIENT
  Age: 51 Year
  Sex: Male
  Weight: 60 kg

DRUGS (8)
  1. ROMIPLATE [Suspect]
     Indication: IDIOPATHIC THROMBOCYTOPENIC PURPURA
     Dosage: 3 mug/kg, qwk
     Route: 058
     Dates: start: 20120507, end: 20120514
  2. PREDNISOLONE [Concomitant]
     Indication: IDIOPATHIC THROMBOCYTOPENIC PURPURA
     Dosage: 35 mg, UNK
     Route: 048
     Dates: start: 20120423
  3. GASTER [Concomitant]
     Indication: PROPHYLAXIS
     Dosage: 40 mg, qd
     Route: 048
     Dates: start: 20120423
  4. BAKTAR [Concomitant]
     Dosage: UNK
     Route: 048
     Dates: start: 20120423
  5. ADONA [Concomitant]
     Dosage: 90 mg, qd
     Route: 048
     Dates: start: 20120423
  6. CINAL [Concomitant]
     Dosage: 1200 mg, qd
     Route: 048
     Dates: start: 20120423
  7. LIPITOR [Concomitant]
     Indication: HYPERLIPIDAEMIA
     Dosage: 10 mg, qd
     Route: 048
     Dates: start: 20120423
  8. NORVASC [Concomitant]
     Indication: HYPERTENSION
     Dosage: 5 mg, qd
     Route: 048
     Dates: start: 20120423

REACTIONS (4)
  - White blood cell count decreased [Not Recovered/Not Resolved]
  - Neutrophil count decreased [Not Recovered/Not Resolved]
  - Myelofibrosis [Recovered/Resolved]
  - Erythroblast count increased [Recovered/Resolved]
